FAERS Safety Report 4747725-6 (Version None)
Quarter: 2005Q3

REPORT INFORMATION
  Report Type: 
  Country: None (occurrence: None)
  Receive Date: 20050816
  Receipt Date: 20050802
  Transmission Date: 20060218
  Serious: Yes (Hospitalization)
  Sender: FDA-Public Use
  Company Number: 204066

PATIENT
  Age: 52 Year
  Sex: Female
  Weight: 77.5651 kg

DRUGS (15)
  1. AVONEX [Suspect]
     Indication: MULTIPLE SCLEROSIS
     Dosage: 30 UG;QW;IM
     Route: 030
     Dates: start: 20010101, end: 20030801
  2. AVONEX [Suspect]
     Indication: MULTIPLE SCLEROSIS
     Dosage: 30 UG;QW;IM
     Route: 030
     Dates: start: 20030801, end: 20040301
  3. AVONEX [Suspect]
     Indication: MULTIPLE SCLEROSIS
     Dosage: 30 UG;QW;IM
     Route: 030
     Dates: start: 20040301
  4. TOPROL-XL [Concomitant]
  5. LOTREL [Concomitant]
  6. NEURONTIN [Concomitant]
  7. PROZAC [Concomitant]
  8. QUININE SULFATE [Concomitant]
  9. MIRAPEX [Concomitant]
  10. DARVOCET [Concomitant]
  11. MEXOI, [Concomitant]
  12. MEDICATION (NOS) [Concomitant]
  13. COUMADIN [Concomitant]
  14. AMBIEN [Concomitant]
  15. NASAL SPRAY (NOS) [Concomitant]

REACTIONS (13)
  - DEHYDRATION [None]
  - DEPRESSION [None]
  - DIARRHOEA [None]
  - FACIAL PAIN [None]
  - FAECAL INCONTINENCE [None]
  - FATIGUE [None]
  - FOOD POISONING [None]
  - GASTROINTESTINAL DISORDER [None]
  - INSOMNIA [None]
  - MUSCLE SPASMS [None]
  - MUSCULOSKELETAL STIFFNESS [None]
  - PAIN [None]
  - VITAMIN D DEFICIENCY [None]
